FAERS Safety Report 7555775-X (Version None)
Quarter: 2011Q2

REPORT INFORMATION
  Report Type: 
  Country: None (occurrence: None)
  Receive Date: 20110618
  Receipt Date: 20100110
  Transmission Date: 20111010
  Serious: Yes (Death, Hospitalization, Other)
  Sender: FDA-Public Use
  Company Number: US-BAYER-201010286NA

PATIENT
  Age: 74 Year
  Sex: Male
  Weight: 102 kg

DRUGS (11)
  1. TRASYLOL [Suspect]
     Dosage: 50 ML/HR, UNK
     Route: 042
     Dates: start: 20030619, end: 20030619
  2. NICOTINE [Concomitant]
     Dosage: UNK
     Route: 061
     Dates: start: 20030618
  3. TRANSDERMAL-NTG [Concomitant]
     Dosage: UNK
     Route: 061
     Dates: start: 20030618
  4. DIMETHOXANATE [Concomitant]
     Dosage: 300 MG, UNK
     Route: 042
     Dates: start: 20030619, end: 20030619
  5. METOPROLOL TARTRATE [Concomitant]
     Dosage: UNK
     Route: 048
     Dates: start: 20030618
  6. VECURONIUM BROMIDE [Concomitant]
     Dosage: UNK
     Route: 042
     Dates: start: 20030619, end: 20030619
  7. ASPIRIN [Concomitant]
     Dosage: UNK
     Route: 048
     Dates: start: 20030618
  8. VERSED [Concomitant]
     Dosage: UNK
     Route: 042
     Dates: start: 20030619, end: 20030619
  9. TRASYLOL [Suspect]
     Indication: CORONARY ARTERY BYPASS
     Dosage: 200 ML, UNK
     Route: 042
     Dates: start: 20030719, end: 20030719
  10. FENTANYL-100 [Concomitant]
     Dosage: UNK
     Route: 042
     Dates: start: 20030619, end: 20030619
  11. NITROGLYCERIN [Concomitant]
     Dosage: UNK
     Route: 042
     Dates: start: 20030619, end: 20030619

REACTIONS (12)
  - RENAL FAILURE [None]
  - ANXIETY [None]
  - FEAR [None]
  - PAIN [None]
  - DEATH [None]
  - MYOCARDIAL INFARCTION [None]
  - RENAL INJURY [None]
  - UNEVALUABLE EVENT [None]
  - INJURY [None]
  - CEREBROVASCULAR ACCIDENT [None]
  - ANHEDONIA [None]
  - DEPRESSION [None]
